FAERS Safety Report 7742040-0 (Version None)
Quarter: 2011Q3

REPORT INFORMATION
  Report Type: 
  Country: None (occurrence: None)
  Receive Date: 20110912
  Receipt Date: 20110829
  Transmission Date: 20111222
  Serious: Yes (Hospitalization)
  Sender: FDA-Public Use
  Company Number: PHHY2011JP60542

PATIENT
  Sex: Female
  Weight: 52 kg

DRUGS (16)
  1. ADALAT [Concomitant]
     Indication: HYPERTENSION
     Dosage: 10 MG, UNK
     Route: 048
     Dates: start: 20091116
  2. BISOPROLOL FUMARATE [Concomitant]
     Dosage: 10 MG, UNK
  3. LEVOTHYROXINE SODIUM [Concomitant]
     Dosage: 100 UG, UNK
  4. LENDORMIN [Concomitant]
     Dosage: 0.25 MG, UNK
     Route: 048
     Dates: start: 20091116
  5. DIOVAN [Concomitant]
     Dosage: 80 MG, UNK
     Route: 048
  6. DIOVAN HCT [Concomitant]
     Indication: HYPERTENSION
     Dosage: 1 DF, UNK
     Route: 048
     Dates: start: 20100318
  7. RINLAXER [Concomitant]
     Dosage: 750 MG, UNK
     Route: 048
     Dates: start: 20091116
  8. PLAVIX [Concomitant]
     Dosage: 75 MG, UNK
     Route: 048
     Dates: start: 20091116
  9. FAMOTIDINE [Concomitant]
     Dosage: 40 MG, UNK
     Route: 048
     Dates: start: 20091116
  10. ALISKIREN [Suspect]
     Indication: HYPERTENSION
     Dosage: 150 MG, UNK
     Route: 048
     Dates: start: 20091225, end: 20101026
  11. ADALAT [Concomitant]
     Dosage: 10 MG, UNK
  12. BISOPROLOL FUMARATE [Concomitant]
     Indication: HYPERTENSION
     Dosage: 5 MG, UNK
     Dates: start: 20091126
  13. LEVOTHYROXINE SODIUM [Concomitant]
     Dosage: 200 UG, UNK
     Route: 048
     Dates: start: 20091116
  14. LEVOTHYROXINE SODIUM [Concomitant]
     Dosage: 150 UG, UNK
     Route: 048
  15. DIOVAN [Concomitant]
     Indication: HYPERTENSION
     Dosage: 160 MG, UNK
     Route: 048
     Dates: start: 20091116
  16. ARICEPT [Concomitant]
     Dosage: 5 MG, UNK
     Route: 048
     Dates: start: 20091116

REACTIONS (4)
  - FEMORAL NECK FRACTURE [None]
  - FALL [None]
  - HAEMOGLOBIN DECREASED [None]
  - HAEMATOCRIT DECREASED [None]
